FAERS Safety Report 6656874-7 (Version None)
Quarter: 2010Q1

REPORT INFORMATION
  Report Type: 
  Country: None (occurrence: None)
  Receive Date: 20100329
  Receipt Date: 20100329
  Transmission Date: 20100710
  Serious: Yes (Disabling)
  Sender: FDA-Public Use
  Company Number: None

PATIENT
  Age: 67 Year
  Sex: Female
  Weight: 83.9154 kg

DRUGS (1)
  1. AROMASIN [Suspect]
     Indication: ADJUVANT THERAPY
     Dosage: 25MG QD BUCCAL
     Route: 002
     Dates: start: 20090715, end: 20091120

REACTIONS (2)
  - NERVE INJURY [None]
  - TENOSYNOVITIS [None]
